FAERS Safety Report 5647426-6 (Version None)
Quarter: 2008Q1

REPORT INFORMATION
  Report Type: 
  Country: None (occurrence: None)
  Receive Date: 20080303
  Receipt Date: 20080225
  Transmission Date: 20080703
  Serious: Yes (Life-Threatening)
  Sender: FDA-Public Use
  Company Number: JP-SANOFI-SYNTHELABO-A01200802192

PATIENT
  Sex: Female

DRUGS (4)
  1. FLUOROURACIL [Suspect]
     Dosage: UNK
     Route: 042
  2. BEVACIZUMAB [Suspect]
     Route: 042
     Dates: start: 20080124, end: 20080124
  3. OXALIPLATIN [Suspect]
     Indication: COLON CANCER
     Dosage: UNK
     Route: 042
  4. CALCIUM LEVOFOLINATE [Suspect]
     Dosage: UNK
     Route: 042

REACTIONS (1)
  - GASTROINTESTINAL PERFORATION [None]
